FAERS Safety Report 9579263 (Version 1)
Quarter: 2013Q4

REPORT INFORMATION
  Report Type: Spontaneous
  Country: US (occurrence: US)
  Receive Date: 20131001
  Receipt Date: 20131001
  Transmission Date: 20140711
  Serious: No
  Sender: FDA-Public Use
  Company Number: US-AMGEN-USASP2013017122

PATIENT
  Age: 66 Year
  Sex: Female
  Weight: 94.33 kg

DRUGS (8)
  1. ENBREL [Suspect]
     Indication: PSORIASIS
     Dosage: 50 MG, 2 TIMES/WK
  2. BENADRYL                           /00000402/ [Concomitant]
     Dosage: 25 MG, UNK
  3. SYNTHROID [Concomitant]
     Dosage: 88 MUG, UNK
  4. ATENOLOL [Concomitant]
     Dosage: 25 MG, UNK
  5. HYDROCHLOROTH [Concomitant]
     Dosage: 12.5 MG, UNK
  6. VITAMIN B-12 [Concomitant]
     Dosage: 1000 UNK, UNK
  7. VITAMIN D                          /00107901/ [Concomitant]
     Dosage: 1000 UNIT, UNK
  8. STELARA [Concomitant]
     Dosage: 45 MG/0.5, UNK

REACTIONS (1)
  - Therapeutic response decreased [Unknown]
